FAERS Safety Report 7332638-6 (Version None)
Quarter: 2011Q1

REPORT INFORMATION
  Report Type: 
  Country: None (occurrence: None)
  Receive Date: 20110304
  Receipt Date: 20110301
  Transmission Date: 20110831
  Serious: Yes (Death)
  Sender: FDA-Public Use
  Company Number: US-SANOFI-AVENTIS-2011SA012852

PATIENT
  Age: 70 Year
  Sex: Male

DRUGS (19)
  1. JEVTANA KIT [Suspect]
     Route: 041
     Dates: start: 20101018, end: 20101018
  2. MICARDIS [Concomitant]
     Dates: end: 20110220
  3. GLYBURIDE [Concomitant]
     Dates: end: 20110220
  4. JEVTANA KIT [Suspect]
     Indication: PROSTATE CANCER METASTATIC
     Route: 041
     Dates: start: 20100927, end: 20100927
  5. JEVTANA KIT [Suspect]
     Route: 041
     Dates: start: 20101220, end: 20101220
  6. OXYGEN [Concomitant]
     Route: 055
     Dates: end: 20110220
  7. ZOMETA [Concomitant]
     Dates: end: 20110220
  8. ALBUTEROL [Concomitant]
     Dates: end: 20110220
  9. CALCIUM [Concomitant]
     Dates: end: 20110220
  10. OXYCODONE [Concomitant]
     Dates: end: 20110220
  11. PREDNISONE [Concomitant]
     Dates: end: 20110220
  12. ADVAIR DISKUS 100/50 [Concomitant]
     Dates: end: 20110220
  13. JEVTANA KIT [Suspect]
     Route: 041
     Dates: start: 20101108, end: 20101108
  14. DILTIAZEM [Concomitant]
     Dates: end: 20110220
  15. PREVACID [Concomitant]
     Dates: end: 20110220
  16. JEVTANA KIT [Suspect]
     Route: 041
     Dates: start: 20101129, end: 20101129
  17. JEVTANA KIT [Suspect]
     Route: 041
     Dates: start: 20110131, end: 20110131
  18. SPIRIVA [Concomitant]
     Dates: end: 20110220
  19. JEVTANA KIT [Suspect]
     Route: 041
     Dates: start: 20110110, end: 20110110

REACTIONS (1)
  - CHRONIC OBSTRUCTIVE PULMONARY DISEASE [None]
